FAERS Safety Report 23914661 (Version 1)
Quarter: 2024Q2

REPORT INFORMATION
  Report Type: Spontaneous
  Country: US (occurrence: None)
  Receive Date: 20240527
  Receipt Date: 20240527
  Transmission Date: 20240716
  Serious: Yes (Hospitalization)
  Sender: FDA-Public Use
  Company Number: None

PATIENT
  Age: 62 Year
  Sex: Female
  Weight: 70.1 kg

DRUGS (8)
  1. CARVYKTI [Suspect]
     Active Substance: CILTACABTAGENE AUTOLEUCEL
     Dosage: OTHER STRENGTH : 45.2 MILLION CELLS;?FREQUENCY : ONCE;?
     Route: 040
     Dates: start: 20231213, end: 20231213
  2. ACYCLOVIR [Concomitant]
     Active Substance: ACYCLOVIR
     Dates: start: 20231208
  3. LEVAQUIN [Concomitant]
     Active Substance: LEVOFLOXACIN
     Dates: start: 20231208
  4. FLUCONAZOLE [Concomitant]
     Active Substance: FLUCONAZOLE
     Dates: start: 20231208
  5. KEPPRA [Concomitant]
     Active Substance: LEVETIRACETAM
     Dates: start: 20231212
  6. LEXAPRO [Concomitant]
     Active Substance: ESCITALOPRAM OXALATE
  7. FAMOTIDINE [Concomitant]
     Active Substance: FAMOTIDINE
  8. GABAPENTIN [Concomitant]
     Active Substance: GABAPENTIN

REACTIONS (15)
  - Chills [None]
  - Palpitations [None]
  - Staphylococcal bacteraemia [None]
  - Product contamination [None]
  - Atrioventricular block first degree [None]
  - Bundle branch block right [None]
  - Bradycardia [None]
  - Presyncope [None]
  - Facial paralysis [None]
  - Dysarthria [None]
  - Muscular weakness [None]
  - Paraesthesia [None]
  - Blood pressure systolic decreased [None]
  - Neurotoxicity [None]
  - Transient ischaemic attack [None]

NARRATIVE: CASE EVENT DATE: 20231222
